FAERS Safety Report 5262776-3 (Version None)
Quarter: 2007Q1

REPORT INFORMATION
  Report Type: 
  Country: None (occurrence: None)
  Receive Date: 20070312
  Receipt Date: 20070308
  Transmission Date: 20070707
  Serious: Yes (Hospitalization)
  Sender: FDA-Public Use
  Company Number: BR-GLAXOSMITHKLINE-A0642511A

PATIENT
  Age: 7 Year
  Sex: Male
  Weight: 25 kg

DRUGS (1)
  1. AMOXIL [Suspect]
     Route: 048
     Dates: start: 20070205, end: 20070206

REACTIONS (3)
  - ANAPHYLACTIC REACTION [None]
  - LARYNGEAL OEDEMA [None]
  - OEDEMA PERIPHERAL [None]
